FAERS Safety Report 23598913 (Version 2)
Quarter: 2024Q1

REPORT INFORMATION
  Report Type: Spontaneous
  Country: US (occurrence: US)
  Receive Date: 20240306
  Receipt Date: 20240330
  Transmission Date: 20240410
  Serious: No
  Sender: FDA-Public Use
  Company Number: US-JNJFOC-20240282811

PATIENT
  Age: 21 Year
  Sex: Male

DRUGS (1)
  1. MENS ROGAINE EXTRA STRENGTH [Suspect]
     Active Substance: MINOXIDIL
     Indication: Alopecia
     Dosage: SOMETIMES WOULD USE MORE THAN 1 ML IF NEEDED TO COVER MORE AREA, FILLING THE DROPPED TO THE 1 ML LIN
     Route: 061
     Dates: start: 20231115

REACTIONS (1)
  - Overdose [Unknown]

NARRATIVE: CASE EVENT DATE: 20231115
